FAERS Safety Report 8453461-5 (Version None)
Quarter: 2012Q2

REPORT INFORMATION
  Report Type: 
  Country: None (occurrence: None)
  Receive Date: 20120620
  Receipt Date: 20120517
  Transmission Date: 20120825
  Serious: No
  Sender: FDA-Public Use
  Company Number: US-VERTEX PHARMACEUTICALS INC.-AE-2012-007399

PATIENT
  Age: 57 Year
  Sex: Male

DRUGS (7)
  1. KLONOPIN [Concomitant]
     Indication: ANXIETY
     Route: 048
  2. PEGASYS [Concomitant]
     Indication: HEPATITIS C
     Route: 058
     Dates: start: 20110701
  3. LISINOPRIL [Concomitant]
     Indication: HYPERTENSION
     Route: 048
  4. NORCO [Concomitant]
     Indication: PAIN
     Route: 048
  5. RIBAVIRIN [Concomitant]
     Indication: HEPATITIS C
     Route: 048
     Dates: start: 20110701
  6. SOMA [Concomitant]
     Indication: MUSCLE TIGHTNESS
  7. INCIVEK [Suspect]
     Indication: HEPATITIS C
     Route: 048
     Dates: start: 20110701

REACTIONS (1)
  - DRUG INEFFECTIVE [None]
